FAERS Safety Report 18070186 (Version 2)
Quarter: 2021Q3

REPORT INFORMATION
  Report Type: Spontaneous
  Country: US (occurrence: US)
  Receive Date: 20200727
  Receipt Date: 20210714
  Transmission Date: 20211014
  Serious: Yes (Hospitalization, Other)
  Sender: FDA-Public Use
  Company Number: US-ALEMBIC PHARMACUETICALS LIMITED-2020SCAL000297

PATIENT

DRUGS (2)
  1. VALSARTAN. [Suspect]
     Active Substance: VALSARTAN
     Indication: BLOOD PRESSURE ABNORMAL
     Dosage: UNK
     Route: 065
     Dates: start: 202001, end: 202006
  2. VALSARTAN. [Suspect]
     Active Substance: VALSARTAN
     Dosage: 160 MILLIGRAM, BID
     Dates: start: 20200628, end: 20200629

REACTIONS (10)
  - Drug ineffective [Unknown]
  - Product substitution issue [Unknown]
  - Blood pressure decreased [Recovered/Resolved]
  - Hyperaldosteronism [Recovered/Resolved]
  - Malaise [Unknown]
  - Fear [Unknown]
  - Blood pressure increased [Recovered/Resolved]
  - Palpitations [Unknown]
  - Mental status changes [Unknown]
  - Muscular weakness [Unknown]

NARRATIVE: CASE EVENT DATE: 202001
